FAERS Safety Report 11754293 (Version 2)
Quarter: 2016Q3

REPORT INFORMATION
  Report Type: Spontaneous
  Country: CA (occurrence: CA)
  Receive Date: 20151119
  Receipt Date: 20160831
  Transmission Date: 20161109
  Serious: Yes (Hospitalization, Other)
  Sender: FDA-Public Use
  Company Number: CA-BAXTER-2015BAX061355

PATIENT
  Age: 79 Year
  Sex: Female

DRUGS (5)
  1. EXTRANEAL [Suspect]
     Active Substance: CALCIUM CHLORIDE\ICODEXTRIN\MAGNESIUM CHLORIDE\SODIUM CHLORIDE\SODIUM LACTATE
     Indication: RENAL FAILURE
  2. EXTRANEAL [Suspect]
     Active Substance: CALCIUM CHLORIDE\ICODEXTRIN\MAGNESIUM CHLORIDE\SODIUM CHLORIDE\SODIUM LACTATE
     Indication: PERITONEAL DIALYSIS
     Route: 033
  3. DIANEAL LOW CALCIUM PERITONEAL DIALYSIS SOLUTION WITH DEXTROSE [Suspect]
     Active Substance: CALCIUM CHLORIDE\DEXTROSE\MAGNESIUM CHLORIDE\SODIUM CHLORIDE\SODIUM LACTATE
     Indication: PERITONEAL DIALYSIS
     Dosage: 5 LITER BAG
     Route: 033
  4. PENICILLIN [Suspect]
     Active Substance: PENICILLIN
     Indication: LOCALISED INFECTION
     Route: 065
  5. DIANEAL LOW CALCIUM PERITONEAL DIALYSIS SOLUTION WITH DEXTROSE [Suspect]
     Active Substance: CALCIUM CHLORIDE\DEXTROSE\MAGNESIUM CHLORIDE\SODIUM CHLORIDE\SODIUM LACTATE
     Indication: RENAL FAILURE
     Dosage: 3 L BAG
     Route: 033

REACTIONS (14)
  - Skin disorder [Unknown]
  - Asthenia [Unknown]
  - Abasia [Unknown]
  - Unevaluable event [Unknown]
  - Pruritus [Not Recovered/Not Resolved]
  - Cystitis [Unknown]
  - Drug hypersensitivity [Unknown]
  - Pyrexia [Unknown]
  - Skin exfoliation [Unknown]
  - Back pain [Unknown]
  - Diarrhoea [Unknown]
  - Swelling [Unknown]
  - Localised infection [Recovered/Resolved]
  - Dizziness [Unknown]

NARRATIVE: CASE EVENT DATE: 2015
